FAERS Safety Report 13786067 (Version 1)
Quarter: 2017Q3

REPORT INFORMATION
  Report Type: Spontaneous
  Country: US (occurrence: US)
  Receive Date: 20170725
  Receipt Date: 20170725
  Transmission Date: 20171127
  Serious: No
  Sender: FDA-Public Use
  Company Number: US-UNITED THERAPEUTICS-UNT-2017-007346

PATIENT
  Age: 8 Month
  Sex: Female
  Weight: 3.99 kg

DRUGS (2)
  1. OPSITE [Suspect]
     Active Substance: POLYURETHANE
     Indication: PRODUCT USED FOR UNKNOWN INDICATION
     Dosage: UNK
     Route: 065
  2. REMODULIN [Suspect]
     Active Substance: TREPROSTINIL
     Indication: PULMONARY ARTERIAL HYPERTENSION
     Dosage: 0.058 ?G/KG, CONTINUING
     Route: 058
     Dates: start: 20160928

REACTIONS (4)
  - Dermatitis contact [Recovered/Resolved]
  - Peripheral swelling [Recovered/Resolved]
  - Infusion site swelling [Recovered/Resolved]
  - Discomfort [Recovered/Resolved]

NARRATIVE: CASE EVENT DATE: 201705
